FAERS Safety Report 9018630 (Version 3)
Quarter: 2013Q2

REPORT INFORMATION
  Report Type: Spontaneous
  Country: US (occurrence: US)
  Receive Date: 20130118
  Receipt Date: 20130426
  Transmission Date: 20140414
  Serious: Yes (Death, Other)
  Sender: FDA-Public Use
  Company Number: US-PFIZER INC-2013020349

PATIENT
  Age: 47 Year
  Sex: Female
  Weight: 52.15 kg

DRUGS (9)
  1. REVATIO [Suspect]
     Indication: PULMONARY ARTERIAL HYPERTENSION
     Dosage: 20 MG, 3X/DAY
     Route: 048
  2. LETAIRIS [Concomitant]
     Dosage: 5 MG, 1X/DAY
     Route: 048
     Dates: start: 201205
  3. COLACE [Concomitant]
     Dosage: 100 MG, 1X/DAY
     Route: 048
  4. FERROUS SULFATE [Concomitant]
     Dosage: 325 MG, 2X/DAY
     Route: 048
  5. CENTRUM [Concomitant]
     Dosage: UNK
  6. LASIX [Concomitant]
     Dosage: 20 MG, 1X/DAY
     Route: 048
  7. SYNTHROID, LEVOTHROID [Concomitant]
     Dosage: 50 UG, 1X/DAY
     Route: 048
  8. BETAPACE [Concomitant]
     Dosage: 40 MG, 2X/DAY
     Route: 048
  9. VITAMIN D3 [Concomitant]
     Dosage: UNK, 1X/DAY
     Route: 048

REACTIONS (1)
  - Death [Fatal]
